FAERS Safety Report 15211997 (Version 2)
Quarter: 2019Q2

REPORT INFORMATION
  Report Type: Spontaneous
  Country: JP (occurrence: JP)
  Receive Date: 20180730
  Receipt Date: 20190404
  Transmission Date: 20190711
  Serious: Yes (Death, Life-Threatening, Hospitalization, Other)
  Sender: FDA-Public Use
  Company Number: JP-CONCORDIA PHARMACEUTICALS INC.-E2B_00014715

PATIENT
  Age: 28 Year
  Sex: Female

DRUGS (12)
  1. ANTITHYMOCYTE GLOBULIN [Suspect]
     Active Substance: THYMOCYTE IMMUNE GLOBULIN NOS
     Indication: PREMEDICATION
  2. TACROLIMUS. [Suspect]
     Active Substance: TACROLIMUS
     Indication: PREMEDICATION
  3. CYTARABINE. [Suspect]
     Active Substance: CYTARABINE
     Indication: PREMEDICATION
  4. PREDNISOLONE. [Suspect]
     Active Substance: PREDNISOLONE
     Indication: AUTOLOGOUS HAEMATOPOIETIC STEM CELL TRANSPLANT
  5. FLUDARABINE [Suspect]
     Active Substance: FLUDARABINE PHOSPHATE
     Indication: PREMEDICATION
  6. CYTARABINE. [Suspect]
     Active Substance: CYTARABINE
     Indication: AUTOLOGOUS HAEMATOPOIETIC STEM CELL TRANSPLANT
  7. MELPHALAN. [Suspect]
     Active Substance: MELPHALAN
     Indication: PREMEDICATION
  8. TACROLIMUS. [Suspect]
     Active Substance: TACROLIMUS
     Indication: AUTOLOGOUS HAEMATOPOIETIC STEM CELL TRANSPLANT
  9. ANTITHYMOCYTE GLOBULIN [Suspect]
     Active Substance: THYMOCYTE IMMUNE GLOBULIN NOS
     Indication: AUTOLOGOUS HAEMATOPOIETIC STEM CELL TRANSPLANT
  10. PREDNISOLONE. [Suspect]
     Active Substance: PREDNISOLONE
     Indication: PREMEDICATION
  11. MELPHALAN. [Suspect]
     Active Substance: MELPHALAN
     Indication: AUTOLOGOUS HAEMATOPOIETIC STEM CELL TRANSPLANT
  12. FLUDARABINE [Suspect]
     Active Substance: FLUDARABINE PHOSPHATE
     Indication: AUTOLOGOUS HAEMATOPOIETIC STEM CELL TRANSPLANT

REACTIONS (7)
  - Brain herniation [Fatal]
  - Brain oedema [Fatal]
  - Respiratory failure [Fatal]
  - Endothelial dysfunction [Fatal]
  - Cerebral haemorrhage [Fatal]
  - Posterior reversible encephalopathy syndrome [Fatal]
  - Cerebral haematoma [Fatal]
